FAERS Safety Report 7803485-3 (Version None)
Quarter: 2011Q4

REPORT INFORMATION
  Report Type: 
  Country: None (occurrence: None)
  Receive Date: 20111007
  Receipt Date: 20110922
  Transmission Date: 20120403
  Serious: Yes (Other)
  Sender: FDA-Public Use
  Company Number: US-ROCHE-798115

PATIENT
  Age: 20 Year
  Sex: Male

DRUGS (2)
  1. AVASTIN [Suspect]
     Indication: HEPATIC NEOPLASM MALIGNANT
     Route: 042
     Dates: start: 20110601
  2. TARCEVA [Suspect]
     Indication: HEPATIC NEOPLASM MALIGNANT
     Dosage: FREQUENCY: QD
     Route: 048

REACTIONS (5)
  - EOSINOPHILIC OESOPHAGITIS [None]
  - DRY SKIN [None]
  - DERMATITIS ACNEIFORM [None]
  - OESOPHAGEAL ULCER [None]
  - SKIN EXFOLIATION [None]
